FAERS Safety Report 10190487 (Version 1)
Quarter: 2014Q2

REPORT INFORMATION
  Report Type: Spontaneous
  Country: US (occurrence: US)
  Receive Date: 20140522
  Receipt Date: 20140522
  Transmission Date: 20141212
  Serious: Yes (Other)
  Sender: FDA-Public Use
  Company Number: US-SA-2013SA098668

PATIENT
  Sex: 0

DRUGS (1)
  1. ELOXATIN [Suspect]
     Route: 065

REACTIONS (6)
  - Drug hypersensitivity [Unknown]
  - Dyspnoea [Unknown]
  - Aphasia [Unknown]
  - Swollen tongue [Unknown]
  - Dysphagia [Unknown]
  - Hypertension [Unknown]
